FAERS Safety Report 10182142 (Version 1)
Quarter: 2014Q2

REPORT INFORMATION
  Report Type: Report from Study
  Country: CA (occurrence: CA)
  Receive Date: 20140520
  Receipt Date: 20140520
  Transmission Date: 20141212
  Serious: Yes (Other)
  Sender: FDA-Public Use
  Company Number: CA-ROCHE-1401586

PATIENT
  Age: 78 Year
  Sex: Male

DRUGS (9)
  1. RITUXAN [Suspect]
     Indication: RHEUMATOID ARTHRITIS
     Dosage: FREQUENCY:  15 DAYS?LAST INFUSION DATE: 24/JUL/2013
     Route: 042
     Dates: start: 20110816
  2. ACETAMINOPHEN [Concomitant]
     Route: 048
     Dates: start: 20110816
  3. METHYLPREDNISOLONE [Concomitant]
     Route: 042
     Dates: start: 20110816
  4. MICARDIS [Concomitant]
  5. CELEBREX [Concomitant]
  6. COUMADIN [Concomitant]
  7. FRAGMIN [Concomitant]
  8. TELMISARTAN [Concomitant]
  9. PANTOPRAZOLE [Concomitant]

REACTIONS (1)
  - Aortic aneurysm [Unknown]
